FAERS Safety Report 9682474 (Version 2)
Quarter: 2013Q4

REPORT INFORMATION
  Report Type: Spontaneous
  Country: US (occurrence: US)
  Receive Date: 20131112
  Receipt Date: 20131219
  Transmission Date: 20140711
  Serious: No
  Sender: FDA-Public Use
  Company Number: US-009507513-1311USA003354

PATIENT
  Age: 65 Year
  Sex: Female

DRUGS (1)
  1. INTRONA [Suspect]
     Indication: ERDHEIM-CHESTER DISEASE
     Dosage: UNK, TIW (THERAPY ROUTE:INJECTION)
     Dates: start: 20131102

REACTIONS (3)
  - Injection site pain [Not Recovered/Not Resolved]
  - Nausea [Not Recovered/Not Resolved]
  - Alopecia [Not Recovered/Not Resolved]
